FAERS Safety Report 10309471 (Version 13)
Quarter: 2015Q3

REPORT INFORMATION
  Report Type: Report from Study
  Country: UA (occurrence: UA)
  Receive Date: 20140717
  Receipt Date: 20150817
  Transmission Date: 20151125
  Serious: Yes (Death, Hospitalization, Disabling)
  Sender: FDA-Public Use
  Company Number: UA-ROCHE-1325561

PATIENT
  Age: 70 Year
  Sex: Male
  Weight: 81 kg

DRUGS (37)
  1. TRASTUZUMAB [Suspect]
     Active Substance: TRASTUZUMAB
     Indication: GASTRIC CANCER
     Dosage: LOADING DOSE,?DATE OF MOST RECENT DOSE PRIOR TO FIRST EPISODE OF ONSET OF WORSENING OF ANEMIA: 10/DE
     Route: 042
     Dates: start: 20131210
  2. CISPLATIN. [Suspect]
     Active Substance: CISPLATIN
     Indication: GASTRIC CANCER
     Dosage: DATE OF MOST RECENT DOSE PRIOR TO ONSET OF SECOND EPISODE OF ONSET OF WORSENING OF ANEMIA: 10/DEC/20
     Route: 042
     Dates: start: 20131210, end: 20140214
  3. DIMEDROLUM [Concomitant]
     Active Substance: DIPHENHYDRAMINE HYDROCHLORIDE
     Route: 065
     Dates: start: 20131210, end: 20131210
  4. DIMEDROLUM [Concomitant]
     Active Substance: DIPHENHYDRAMINE HYDROCHLORIDE
     Route: 065
     Dates: start: 20140214, end: 20140214
  5. DIMEDROLUM [Concomitant]
     Active Substance: DIPHENHYDRAMINE HYDROCHLORIDE
     Route: 065
     Dates: start: 20131230, end: 20131230
  6. METOCLOPRAMID [Concomitant]
     Active Substance: METOCLOPRAMIDE
     Route: 065
     Dates: start: 20140212
  7. INFESOL [Concomitant]
     Route: 065
     Dates: start: 20140210, end: 20140212
  8. CAPECITABINE. [Suspect]
     Active Substance: CAPECITABINE
     Indication: GASTRIC CANCER
     Dosage: DATE OF MOST RECENT DOSE PRIOR TO ONSET OF FIRST EPISODE OF  WORSENING OF ANEMIA: 17/DEC/2013 (3300M
     Route: 048
     Dates: start: 20131210, end: 20131217
  9. DIMEDROLUM [Concomitant]
     Active Substance: DIPHENHYDRAMINE HYDROCHLORIDE
     Route: 065
     Dates: start: 20140122, end: 20140122
  10. FUROSEMIDE. [Concomitant]
     Active Substance: FUROSEMIDE
     Route: 065
     Dates: start: 20131210, end: 20131210
  11. MANNIT [Concomitant]
     Route: 065
     Dates: start: 20140122, end: 20140122
  12. ZOFRAN [Concomitant]
     Active Substance: ONDANSETRON HYDROCHLORIDE
     Indication: PROPHYLAXIS OF NAUSEA AND VOMITING
     Route: 065
     Dates: start: 20131230, end: 20131230
  13. ZOFRAN [Concomitant]
     Active Substance: ONDANSETRON HYDROCHLORIDE
     Route: 065
     Dates: start: 20140214, end: 20140214
  14. FILSTIM [Concomitant]
     Indication: NEUTROPENIA
     Route: 065
     Dates: start: 20140120, end: 20140121
  15. PANTOPRAZOLUM [Concomitant]
     Indication: STRESS ULCER
     Route: 065
     Dates: start: 20131210, end: 20131210
  16. NACL .9% [Concomitant]
     Route: 065
     Dates: start: 20140122, end: 20140122
  17. MANNIT [Concomitant]
     Route: 065
     Dates: start: 20131210, end: 20131210
  18. GORDOX (UKRAINE) [Concomitant]
     Route: 065
     Dates: start: 20140214, end: 20140215
  19. ONDANSETRON [Concomitant]
     Active Substance: ONDANSETRON
     Indication: NAUSEA
     Route: 065
     Dates: start: 20131210, end: 20131210
  20. PANTOPRAZOLUM [Concomitant]
     Route: 065
     Dates: start: 20131230, end: 20131230
  21. NACL .9% [Concomitant]
     Route: 065
     Dates: start: 20131210, end: 20131210
  22. NACL .9% [Concomitant]
     Route: 065
     Dates: start: 20131230, end: 20131230
  23. MANNIT [Concomitant]
     Route: 065
     Dates: start: 20131230, end: 20131230
  24. FILSTIM [Concomitant]
     Route: 065
     Dates: start: 20130211, end: 20140212
  25. METOCLOPRAMID [Concomitant]
     Active Substance: METOCLOPRAMIDE
     Indication: PROPHYLAXIS OF NAUSEA AND VOMITING
     Route: 065
     Dates: start: 20131210, end: 20131210
  26. METOCLOPRAMID [Concomitant]
     Active Substance: METOCLOPRAMIDE
     Route: 065
     Dates: start: 20140122, end: 20140122
  27. SORBIFER (UKRAINE) [Concomitant]
     Indication: ANAEMIA
     Route: 065
     Dates: start: 20131217
  28. ZOFRAN [Concomitant]
     Active Substance: ONDANSETRON HYDROCHLORIDE
     Route: 065
     Dates: start: 20140122, end: 20140122
  29. VOLUVEN (UKRAINE) [Concomitant]
     Route: 065
     Dates: start: 20140210, end: 20140210
  30. TRASTUZUMAB [Suspect]
     Active Substance: TRASTUZUMAB
     Dosage: DATE OF MOST RECENT DOSE PRIOR TO SECOND EPISODE OF WORSENING OF ANEMIA ON : 30/DEC/2013 (810MG) ?DA
     Route: 042
     Dates: start: 20140101, end: 20140214
  31. CAPECITABINE. [Suspect]
     Active Substance: CAPECITABINE
     Dosage: DATE OF MOST RECENT DOSE PRIOR TO ONSET OF SECOND EPISODE OF  WORSENING OF ANEMIA RECEIVED ON 03/JAN
     Route: 048
     Dates: start: 20131210, end: 20140220
  32. PANTOPRAZOLUM [Concomitant]
     Route: 065
     Dates: start: 20140122, end: 20140122
  33. FUROSEMIDE. [Concomitant]
     Active Substance: FUROSEMIDE
     Route: 065
     Dates: start: 20140212, end: 20140215
  34. NACL .9% [Concomitant]
     Route: 065
     Dates: start: 20140214, end: 20140214
  35. METOCLOPRAMID [Concomitant]
     Active Substance: METOCLOPRAMIDE
     Route: 065
     Dates: start: 20131230, end: 20131230
  36. OMEPRAZOLUM [Concomitant]
     Route: 048
     Dates: start: 20131224, end: 20140209
  37. OMEPRAZOLUM [Concomitant]
     Route: 065
     Dates: start: 20140122, end: 20140122

REACTIONS (2)
  - Anaemia [Recovered/Resolved]
  - Death [Fatal]

NARRATIVE: CASE EVENT DATE: 20131224
